FAERS Safety Report 9354417 (Version 1)
Quarter: 2013Q2

REPORT INFORMATION
  Report Type: Spontaneous
  Country: US (occurrence: US)
  Receive Date: 20130618
  Receipt Date: 20130618
  Transmission Date: 20140414
  Serious: No
  Sender: FDA-Public Use
  Company Number: US-COVIDIEN/TYCO HEALTHCARE/MALLINCKRODT-T201204202

PATIENT
  Age: 58 Year
  Sex: Male

DRUGS (4)
  1. TECHNESCAN MAG3 [Suspect]
     Indication: IMAGING PROCEDURE
     Dosage: UNK
     Dates: start: 20121115, end: 20121115
  2. ULTRA-TECHNEKOW DTE GENERATOR [Suspect]
     Dosage: UNK
     Dates: start: 20121115, end: 20121115
  3. ANDROGEL [Concomitant]
     Dosage: UNK
  4. HYDROCHLOROTHIAZIDE [Concomitant]
     Dosage: UNK

REACTIONS (12)
  - Dysphagia [Recovered/Resolved]
  - Urticaria [Recovering/Resolving]
  - Skin ulcer [Recovering/Resolving]
  - Feeling hot [Recovering/Resolving]
  - Lethargy [Recovering/Resolving]
  - Fatigue [Recovering/Resolving]
  - Decreased appetite [Recovered/Resolved]
  - Pallor [Recovering/Resolving]
  - Burning sensation [Unknown]
  - Headache [Unknown]
  - Pruritus [Recovering/Resolving]
  - Nausea [Unknown]
